FAERS Safety Report 18871421 (Version 1)
Quarter: 2021Q1

REPORT INFORMATION
  Report Type: Spontaneous
  Country: US (occurrence: US)
  Receive Date: 20210210
  Receipt Date: 20210210
  Transmission Date: 20210420
  Serious: No
  Sender: FDA-Public Use
  Company Number: US-BAYER-2021-059503

PATIENT
  Age: 45 Year
  Sex: Male

DRUGS (1)
  1. MIRALAX [Suspect]
     Active Substance: POLYETHYLENE GLYCOL 3350
     Indication: GASTROINTESTINAL DISORDER
     Dosage: ;1 PACKET IN 4?8 OUNCES OF A BEVERAGE DOSE
     Route: 048

REACTIONS (1)
  - Abdominal distension [Not Recovered/Not Resolved]
